FAERS Safety Report 5083315-6 (Version None)
Quarter: 2006Q3

REPORT INFORMATION
  Report Type: 
  Country: None (occurrence: None)
  Receive Date: 20060818
  Receipt Date: 20060620
  Transmission Date: 20061208
  Serious: Yes (Hospitalization)
  Sender: FDA-Public Use
  Company Number: GBWYE758721JUN06

PATIENT
  Sex: Female

DRUGS (3)
  1. ENBREL [Suspect]
     Indication: PSORIATIC ARTHROPATHY
     Route: 058
     Dates: start: 20051001, end: 20060501
  2. ENBREL [Suspect]
     Indication: PSORIASIS
  3. METHOTREXATE [Suspect]
     Indication: PSORIATIC ARTHROPATHY
     Route: 048
     Dates: end: 20060501

REACTIONS (3)
  - HAEMOGLOBIN DECREASED [None]
  - PANCYTOPENIA [None]
  - SEPSIS [None]
